FAERS Safety Report 14580193 (Version 4)
Quarter: 2018Q4

REPORT INFORMATION
  Report Type: Spontaneous
  Country: IT (occurrence: IT)
  Receive Date: 20180228
  Receipt Date: 20181225
  Transmission Date: 20190204
  Serious: Yes (Other)
  Sender: FDA-Public Use
  Company Number: IT-ACCORD-063806

PATIENT
  Age: 14 Year
  Sex: Male
  Weight: 48 kg

DRUGS (25)
  1. ENDOXAN BAXTER [Suspect]
     Active Substance: CYCLOPHOSPHAMIDE
     Indication: ALLOGENIC BONE MARROW TRANSPLANTATION THERAPY
     Route: 042
     Dates: start: 20170523, end: 20170526
  2. TRIASPORIN [Concomitant]
     Active Substance: ITRACONAZOLE
     Dosage: 10 ML DAILY
     Route: 048
     Dates: start: 20170520, end: 20170522
  3. CICLOSPORIN [Concomitant]
     Active Substance: CYCLOSPORINE
     Dosage: 75 MG DAILY
     Dates: start: 20170527, end: 20170620
  4. DIFLUCAN [Concomitant]
     Active Substance: FLUCONAZOLE
     Dosage: 500 MG DAILY
     Route: 042
     Dates: start: 20170520, end: 20170522
  5. FUROSEMIDE. [Concomitant]
     Active Substance: FUROSEMIDE
     Dosage: 20 MG DAILY
     Route: 042
     Dates: start: 20170523, end: 20170626
  6. HEPARIN [Concomitant]
     Active Substance: HEPARIN SODIUM
     Dates: start: 20170523, end: 20170619
  7. BACTRIM [Concomitant]
     Active Substance: SULFAMETHOXAZOLE\TRIMETHOPRIM
     Dosage: 1 DF DAILY
     Route: 048
     Dates: start: 20170523
  8. MERREM [Concomitant]
     Active Substance: MEROPENEM
     Dosage: 1 G DAILY, 3 G  DAILY
     Route: 042
     Dates: start: 20170520, end: 20170617
  9. UROMITEXAN [Concomitant]
     Active Substance: MESNA
     Dosage: 150 MG DAILY
     Route: 042
     Dates: start: 20170523, end: 20170526
  10. ZOVIRAX [Concomitant]
     Active Substance: ACYCLOVIR
     Route: 042
     Dates: start: 20170520, end: 20170522
  11. METHOTREXATE. [Suspect]
     Active Substance: METHOTREXATE
     Indication: PRODUCT USED FOR UNKNOWN INDICATION
     Route: 042
     Dates: start: 20170530, end: 20170604
  12. THYMOGLOBULINE [Suspect]
     Active Substance: LAPINE T-LYMPHOCYTE IMMUNE GLOBULIN
     Indication: BONE MARROW TRANSPLANT
     Dosage: 150 MG DAILY,
     Route: 042
     Dates: start: 20170523, end: 20170526
  13. ANTRA [Concomitant]
     Active Substance: OMEPRAZOLE
     Dosage: 40 MG DAILY
     Route: 042
     Dates: start: 20170520, end: 20170529
  14. EMEND [Concomitant]
     Active Substance: APREPITANT
     Dates: start: 20170523, end: 20170525
  15. PALONOSETRON. [Concomitant]
     Active Substance: PALONOSETRON HYDROCHLORIDE
     Dosage: 1 DF DAILY
     Dates: start: 20170523
  16. TACHIPIRINA [Concomitant]
     Active Substance: ACETAMINOPHEN
     Route: 048
     Dates: start: 20170523, end: 20170526
  17. TRIMETON [Concomitant]
     Active Substance: CHLORPHENIRAMINE MALEATE
     Dosage: 10 MG DAILY
     Route: 042
     Dates: start: 20170523, end: 20170526
  18. CLINDAMYCIN. [Concomitant]
     Active Substance: CLINDAMYCIN
     Dosage: 300 MG DAILY, 900 MG
     Route: 042
     Dates: start: 20170520, end: 20170617
  19. URSODEOXYCHOLATE SODIUM/URSODEOXYCHOLIC ACID [Concomitant]
     Route: 048
     Dates: start: 20170523, end: 20170526
  20. FLUDARABINE/FLUDARABINE PHOSPHATE [Suspect]
     Active Substance: FLUDARABINE PHOSPHATE
     Indication: ALLOGENIC BONE MARROW TRANSPLANTATION THERAPY
     Route: 042
     Dates: start: 20170523, end: 20170526
  21. ACICLOVIR/ACICLOVIR SODIUM [Concomitant]
     Dosage: 500 MG DAILY, 1500 MG
     Route: 042
     Dates: start: 20170527, end: 20170626
  22. DIAMINOCILLINA [Concomitant]
     Active Substance: PENICILLIN G BENZATHINE
     Dosage: 1200000 DF DAILY
     Dates: start: 20170522
  23. MYCOSTATIN [Concomitant]
     Active Substance: NYSTATIN
     Dosage: 5 ML DAILY
     Route: 048
     Dates: start: 20170520, end: 20170522
  24. URBASON [Concomitant]
     Active Substance: METHYLPREDNISOLONE
     Dosage: 20 MG DAILY, 40 MG DAILY
     Route: 042
     Dates: start: 20170523, end: 20170526
  25. FLUCONAZOLE. [Concomitant]
     Active Substance: FLUCONAZOLE
     Route: 048
     Dates: start: 20170523, end: 20170531

REACTIONS (7)
  - Diarrhoea [Recovered/Resolved]
  - Haematochezia [Recovered/Resolved]
  - Mouth haemorrhage [Recovering/Resolving]
  - Off label use [Unknown]
  - Pruritus [Recovered/Resolved]
  - Petechiae [Recovered/Resolved]
  - Erythema [Recovering/Resolving]

NARRATIVE: CASE EVENT DATE: 20170524
